FAERS Safety Report 10274656 (Version 3)
Quarter: 2014Q4

REPORT INFORMATION
  Report Type: Spontaneous
  Country: DE (occurrence: DE)
  Receive Date: 20140702
  Receipt Date: 20141106
  Transmission Date: 20150528
  Serious: Yes (Hospitalization, Other)
  Sender: FDA-Public Use
  Company Number: DE-ABBVIE-14P-062-1253763-00

PATIENT
  Age: 69 Year
  Sex: Male
  Weight: 78 kg

DRUGS (3)
  1. KREON [Suspect]
     Active Substance: PANCRELIPASE
     Indication: PANCREATIC INSUFFICIENCY
     Dosage: 25000, DAILY DOSE: 2 - 3 /DAILY
     Route: 065
     Dates: start: 20130630
  2. CANDESARTAN [Concomitant]
     Active Substance: CANDESARTAN
     Indication: HYPERTENSION
     Route: 065
  3. KREON [Suspect]
     Active Substance: PANCRELIPASE
     Dosage: 40000 (DAILY DOSE; 1 CAPSULE)
     Route: 065
     Dates: start: 20140618, end: 20140618

REACTIONS (3)
  - Abdominal hernia [Recovered/Resolved]
  - Blood pressure increased [Recovering/Resolving]
  - Hypertension [Recovered/Resolved]

NARRATIVE: CASE EVENT DATE: 2013
